FAERS Safety Report 4944579-X (Version None)
Quarter: 2006Q1

REPORT INFORMATION
  Report Type: 
  Country: None (occurrence: None)
  Receive Date: 20060315
  Receipt Date: 20060301
  Transmission Date: 20060701
  Serious: Yes (Other)
  Sender: FDA-Public Use
  Company Number: 2006GB00379

PATIENT
  Age: 5969 Day
  Sex: Female

DRUGS (1)
  1. XYLOCAINE W/ EPINEPHRINE [Suspect]
     Indication: LOCAL ANAESTHESIA
     Dosage: 1:2000,000
     Route: 058
     Dates: start: 20060222, end: 20060222

REACTIONS (2)
  - DRUG INEFFECTIVE [None]
  - SKIN HAEMORRHAGE [None]
